FAERS Safety Report 21471792 (Version 2)
Quarter: 2022Q4

REPORT INFORMATION
  Report Type: Spontaneous
  Country: JP (occurrence: JP)
  Receive Date: 20221018
  Receipt Date: 20221104
  Transmission Date: 20230113
  Serious: Yes (Hospitalization)
  Sender: FDA-Public Use
  Company Number: JP-PFIZER INC-202201233509

PATIENT
  Age: 62 Year
  Sex: Female
  Weight: 55.4 kg

DRUGS (5)
  1. PAXLOVID [Suspect]
     Active Substance: NIRMATRELVIR\RITONAVIR
     Indication: COVID-19 treatment
     Dosage: [PF-07321332 300 MG]/[RITONAVIR 100 MG]; 2X/DAY
     Route: 048
     Dates: start: 20221004, end: 20221006
  2. ATORVASTATIN [Concomitant]
     Active Substance: ATORVASTATIN
     Indication: Hypercholesterolaemia
     Dosage: 10 MG, 1X/DAY
     Route: 048
     Dates: start: 20140602
  3. TRICHLORMETHIAZIDE [Concomitant]
     Active Substance: TRICHLORMETHIAZIDE
     Indication: Hypertension
     Dosage: 2 MG, 1X/DAY
     Route: 048
     Dates: start: 20200914
  4. ESAXERENONE [Concomitant]
     Active Substance: ESAXERENONE
     Indication: Hypertension
     Dosage: 2.5MG 2 TABLETS ONCE A DAY
     Route: 048
     Dates: start: 20220117
  5. KAMIKIHITO [ANGELICA ARCHANGELICA ROOT;ASTRAGALUS SPP. ROOT;ATRACTYLOD [Concomitant]
     Indication: Anxiety disorder
     Dosage: 5MG (2 PACKETS) TWICE A DAY
     Route: 048
     Dates: start: 20220912

REACTIONS (5)
  - Dyspnoea [Recovered/Resolved]
  - Vomiting [Recovered/Resolved]
  - Dizziness [Recovered/Resolved]
  - Nausea [Recovered/Resolved]
  - Hypertension [Unknown]

NARRATIVE: CASE EVENT DATE: 20221005
